FAERS Safety Report 4738594-9 (Version None)
Quarter: 2005Q3

REPORT INFORMATION
  Report Type: 
  Country: None (occurrence: None)
  Receive Date: 20050803
  Receipt Date: 20050707
  Transmission Date: 20060218
  Serious: Yes (Death, Hospitalization, Other)
  Sender: FDA-Public Use
  Company Number: US_0411107895

PATIENT
  Age: 29 Year
  Sex: Female
  Weight: 113 kg

DRUGS (17)
  1. ZYPREXA [Suspect]
     Indication: BIPOLAR DISORDER
     Dosage: 20 MG
     Dates: start: 20010226, end: 20021020
  2. FLUOXETINE [Concomitant]
  3. SEROQUEL [Concomitant]
  4. HALDOL (HALOPERIDOL DECANOATE) [Concomitant]
  5. DEPAKOTE [Concomitant]
  6. WELLBUTRIN [Concomitant]
  7. PREDNISOLONE [Concomitant]
  8. CLONAZEPAM [Concomitant]
  9. BENZTROPINE [Concomitant]
  10. FLUOCINOLONE ACETONIDE [Concomitant]
  11. ZYRTEC [Concomitant]
  12. RISPERDAL [Concomitant]
  13. DIPHENHYDRAMINE [Concomitant]
  14. SULFAMETHOXAZOLE [Concomitant]
  15. PROMETRIUM [Concomitant]
  16. DOCUSATE [Concomitant]
  17. LORAZEPAM [Concomitant]

REACTIONS (7)
  - BIPOLAR DISORDER [None]
  - BLOOD GLUCOSE INCREASED [None]
  - CONDITION AGGRAVATED [None]
  - DIABETES MELLITUS [None]
  - DIABETIC KETOACIDOSIS [None]
  - HEPATIC ENZYME INCREASED [None]
  - SCHIZOPHRENIA, PARANOID TYPE [None]
